FAERS Safety Report 7101051-9 (Version None)
Quarter: 2010Q4

REPORT INFORMATION
  Report Type: 
  Country: None (occurrence: None)
  Receive Date: 20101113
  Receipt Date: 20100421
  Transmission Date: 20110411
  Serious: No
  Sender: FDA-Public Use
  Company Number: US-ALLERGAN-1005287US

PATIENT
  Age: 33 Year
  Sex: Female

DRUGS (1)
  1. BOTOXA? [Suspect]
     Indication: BACK PAIN
     Dosage: 300 UNITS, UNK
     Route: 030
     Dates: start: 20100319, end: 20100319

REACTIONS (1)
  - BACK PAIN [None]
